FAERS Safety Report 6013316-2 (Version None)
Quarter: 2008Q4

REPORT INFORMATION
  Report Type: 
  Country: None (occurrence: None)
  Receive Date: 20081218
  Receipt Date: 20081218
  Transmission Date: 20090506
  Serious: No
  Sender: FDA-Public Use
  Company Number: None

PATIENT
  Age: 79 Year
  Sex: Female

DRUGS (6)
  1. ALENDRONATE SODIUM [Suspect]
     Dosage: 1 WEEKLY
  2. LOMOTIL [Concomitant]
  3. LOTENSIN [Concomitant]
  4. METFORMIN [Concomitant]
  5. COUMADIN [Concomitant]
  6. LIDODERM [Concomitant]

REACTIONS (4)
  - ALOPECIA [None]
  - MADAROSIS [None]
  - PRODUCT QUALITY ISSUE [None]
  - RENAL PAIN [None]
